FAERS Safety Report 9260315 (Version 3)
Quarter: 2013Q2

REPORT INFORMATION
  Report Type: Spontaneous
  Country: GB (occurrence: GB)
  Receive Date: 20130429
  Receipt Date: 20130521
  Transmission Date: 20140414
  Serious: Yes (Death)
  Sender: FDA-Public Use
  Company Number: PHFR2013GB002412

PATIENT
  Age: 60 Year
  Sex: Female
  Weight: 84 kg

DRUGS (7)
  1. EVEROLIMUS [Suspect]
     Indication: PANCREATIC NEUROENDOCRINE TUMOUR
     Dosage: 10 MG, DAILY
     Route: 048
     Dates: start: 20111110, end: 20111212
  2. EVEROLIMUS [Suspect]
     Dosage: 5 MG, DAILY
     Route: 048
     Dates: start: 20111213, end: 20120629
  3. OMEPRAZOLE [Concomitant]
     Dosage: 20 MG, UNK
     Route: 048
  4. PARACETAMOL [Concomitant]
     Indication: PAIN
     Route: 048
  5. METOCLOPRAMIDE [Concomitant]
     Indication: NAUSEA
     Dosage: 30 MG, UNK
     Route: 048
  6. LEVOTHYROXINE [Concomitant]
     Indication: HYPOTHYROIDISM
     Dosage: 20 MG, UNK
     Route: 048
  7. SENNA [Concomitant]
     Indication: CONSTIPATION
     Dosage: 20 MG, UNK

REACTIONS (4)
  - Hypoglycaemia [Fatal]
  - Pancreatic neuroendocrine tumour [Fatal]
  - Malignant neoplasm progression [Fatal]
  - Rash [Recovered/Resolved]
